FAERS Safety Report 8559956-8 (Version None)
Quarter: 2012Q3

REPORT INFORMATION
  Report Type: 
  Country: None (occurrence: None)
  Receive Date: 20120802
  Receipt Date: 20120725
  Transmission Date: 20120928
  Serious: Yes (Other)
  Sender: FDA-Public Use
  Company Number: US-US-EMD SERONO, INC.-7150559

PATIENT
  Sex: Female

DRUGS (4)
  1. PLAVIX [Concomitant]
     Indication: CAROTID ARTERY DISSECTION
  2. REBIF [Suspect]
     Indication: MULTIPLE SCLEROSIS
     Route: 058
     Dates: start: 20090101, end: 20100101
  3. REBIF [Suspect]
     Route: 058
     Dates: start: 20110125
  4. NAPROSYN [Concomitant]
     Indication: PREMEDICATION

REACTIONS (5)
  - MUSCLE SPASTICITY [None]
  - INJECTION SITE ERYTHEMA [None]
  - INJECTION SITE PAIN [None]
  - NEPHROLITHIASIS [None]
  - INJECTION SITE MASS [None]
